FAERS Safety Report 7850200-3 (Version None)
Quarter: 2011Q4

REPORT INFORMATION
  Report Type: 
  Country: None (occurrence: None)
  Receive Date: 20111021
  Receipt Date: 20111014
  Transmission Date: 20120403
  Serious: Yes (Death, Life-Threatening, Hospitalization, Other)
  Sender: FDA-Public Use
  Company Number: AUR-APL-2011-05074

PATIENT
  Age: 71 Year
  Sex: Male
  Weight: 88 kg

DRUGS (7)
  1. TRABECTEDIN [Suspect]
     Indication: LIPOSARCOMA
     Dosage: (3.15 MG), INTRAVENOUS
     Route: 042
  2. RAMIPRIL [Concomitant]
  3. ASPIRIN [Concomitant]
  4. SIMVASTATIN [Suspect]
     Indication: PRODUCT USED FOR UNKNOWN INDICATION
  5. ZOCOR [Concomitant]
  6. METOPROLOL TARTRATE [Concomitant]
  7. CORTICOSTERIODS [Concomitant]

REACTIONS (7)
  - LUNG INFILTRATION [None]
  - BONE MARROW FAILURE [None]
  - RENAL FAILURE [None]
  - DIALYSIS [None]
  - ASCITES [None]
  - PLEURAL EFFUSION [None]
  - RHABDOMYOLYSIS [None]
